FAERS Safety Report 8450152-1 (Version None)
Quarter: 2012Q2

REPORT INFORMATION
  Report Type: 
  Country: None (occurrence: None)
  Receive Date: 20120614
  Receipt Date: 20120614
  Transmission Date: 20120825
  Serious: No
  Sender: FDA-Public Use
  Company Number: None

PATIENT
  Sex: Female
  Weight: 89 kg

DRUGS (1)
  1. SEVELAMER HYDROCHLORIDE (RENAGEL) [Suspect]
     Indication: RENAL FAILURE CHRONIC
     Dosage: 1600MG TID PO
     Route: 048
     Dates: start: 20111101, end: 20120530

REACTIONS (16)
  - COUGH [None]
  - FATIGUE [None]
  - DRUG INEFFECTIVE [None]
  - NAUSEA [None]
  - HAEMATEMESIS [None]
  - OEDEMA PERIPHERAL [None]
  - STRESS URINARY INCONTINENCE [None]
  - RASH [None]
  - EROSIVE OESOPHAGITIS [None]
  - THROAT IRRITATION [None]
  - SINUS DISORDER [None]
  - BRONCHIAL HYPERREACTIVITY [None]
  - LARYNGOSCOPY ABNORMAL [None]
  - OEDEMA [None]
  - PERITONEAL DIALYSIS [None]
  - SNORING [None]
